FAERS Safety Report 24082943 (Version 1)
Quarter: 2024Q3

REPORT INFORMATION
  Report Type: Spontaneous
  Country: US (occurrence: US)
  Receive Date: 20240712
  Receipt Date: 20240712
  Transmission Date: 20241016
  Serious: No
  Sender: ABBVIE
  Company Number: US-ABBVIE-5836593

PATIENT

DRUGS (3)
  1. HUMIRA [Suspect]
     Active Substance: ADALIMUMAB
     Indication: Product used for unknown indication
     Dosage: DAY 1
     Route: 058
     Dates: start: 202401, end: 202401
  2. HUMIRA [Suspect]
     Active Substance: ADALIMUMAB
     Dosage: DAY 2
     Route: 058
     Dates: start: 202401, end: 202401
  3. HUMIRA [Suspect]
     Active Substance: ADALIMUMAB
     Dosage: DAY 15
     Route: 058
     Dates: start: 2024, end: 2024

REACTIONS (3)
  - Injection site discharge [Unknown]
  - Injection site erythema [Unknown]
  - Device issue [Unknown]

NARRATIVE: CASE EVENT DATE: 20240101
